FAERS Safety Report 10152387 (Version 3)
Quarter: 2014Q2

REPORT INFORMATION
  Report Type: Spontaneous
  Country: IL (occurrence: IL)
  Receive Date: 20140505
  Receipt Date: 20140509
  Transmission Date: 20141212
  Serious: Yes (Death, Life-Threatening, Other)
  Sender: FDA-Public Use
  Company Number: PHHY2014IL040220

PATIENT
  Age: 83 Year
  Sex: Female

DRUGS (4)
  1. AFINITOR [Suspect]
     Indication: BREAST CANCER METASTATIC
     Dosage: 10 MG, QD
     Route: 048
     Dates: start: 20140226, end: 20140316
  2. AROMASIN [Concomitant]
     Dosage: UNK UKN, UNK
  3. ASPIRIN [Concomitant]
     Dosage: UNK UKN, UNK
  4. DUROGESIC [Concomitant]

REACTIONS (9)
  - Pneumonitis [Fatal]
  - Pleural effusion [Fatal]
  - Productive cough [Fatal]
  - Dyspnoea [Fatal]
  - Sepsis [Fatal]
  - Renal failure [Fatal]
  - Blood creatinine increased [Fatal]
  - Lethargy [Fatal]
  - Dehydration [Unknown]
